FAERS Safety Report 5575638-9 (Version None)
Quarter: 2007Q4

REPORT INFORMATION
  Report Type: 
  Country: None (occurrence: None)
  Receive Date: 20071130
  Receipt Date: 20070919
  Transmission Date: 20080405
  Serious: No
  Sender: FDA-Public Use
  Company Number: US200709006253

PATIENT
  Age: 58 Year
  Sex: Male

DRUGS (4)
  1. BYETTA [Suspect]
     Dosage: 10 UG, SUBCUTANEOUS
     Route: 058
     Dates: start: 20070418, end: 20070815
  2. METFORMIN HCL [Concomitant]
  3. ACTOS /USA/ (PIOGLITAZONE HYDROCHLORIDE) [Concomitant]
  4. AMARYL [Concomitant]

REACTIONS (3)
  - GINGIVAL BLEEDING [None]
  - GINGIVAL HYPERPLASIA [None]
  - GINGIVAL SWELLING [None]
